FAERS Safety Report 25238145 (Version 1)
Quarter: 2025Q2

REPORT INFORMATION
  Report Type: Spontaneous
  Country: US (occurrence: US)
  Receive Date: 20250425
  Receipt Date: 20250425
  Transmission Date: 20250716
  Serious: No
  Sender: SUNOVION
  Company Number: US-SMPA-2025SPA003942AA

PATIENT

DRUGS (1)
  1. GEMTESA [Suspect]
     Active Substance: VIBEGRON
     Indication: Product used for unknown indication
     Route: 048
     Dates: start: 20250312

REACTIONS (6)
  - Hyperhidrosis [Unknown]
  - Body temperature increased [Unknown]
  - Pollakiuria [Not Recovered/Not Resolved]
  - Feeling hot [Unknown]
  - Headache [Unknown]
  - Product use issue [Unknown]
